FAERS Safety Report 6263561-6 (Version None)
Quarter: 2009Q3

REPORT INFORMATION
  Report Type: 
  Country: None (occurrence: None)
  Receive Date: 20090710
  Receipt Date: 20090424
  Transmission Date: 20100115
  Serious: No
  Sender: FDA-Public Use
  Company Number: A0780572A

PATIENT
  Age: 48 Year
  Sex: Female

DRUGS (3)
  1. TYKERB [Suspect]
     Indication: BREAST CANCER
     Dosage: 4TAB PER DAY
     Route: 048
     Dates: start: 20090301
  2. ARIXTRA [Concomitant]
  3. FENTANYL [Concomitant]

REACTIONS (4)
  - CHEILITIS [None]
  - DIARRHOEA [None]
  - DRY MOUTH [None]
  - VOMITING [None]
